FAERS Safety Report 16077527 (Version 1)
Quarter: 2019Q1

REPORT INFORMATION
  Report Type: Spontaneous
  Country: US (occurrence: US)
  Receive Date: 20190315
  Receipt Date: 20190315
  Transmission Date: 20190418
  Serious: Yes (Hospitalization)
  Sender: FDA-Public Use
  Company Number: US-JNJFOC-20190313992

PATIENT
  Age: 63 Year
  Sex: Female

DRUGS (3)
  1. NAPROXEN. [Suspect]
     Active Substance: NAPROXEN
     Indication: PRODUCT USED FOR UNKNOWN INDICATION
     Route: 048
     Dates: start: 20160607
  2. INVOKANA [Suspect]
     Active Substance: CANAGLIFLOZIN
     Indication: DIABETES MELLITUS INADEQUATE CONTROL
     Route: 048
  3. INVOKANA [Suspect]
     Active Substance: CANAGLIFLOZIN
     Indication: DIABETES MELLITUS INADEQUATE CONTROL
     Route: 048
     Dates: end: 201609

REACTIONS (3)
  - Finger amputation [Unknown]
  - Blood urine present [Unknown]
  - Necrosis ischaemic [Unknown]

NARRATIVE: CASE EVENT DATE: 20160421
